FAERS Safety Report 8771005 (Version 1)
Quarter: 2012Q4

REPORT INFORMATION
  Report Type: 
  Country: US (occurrence: US)
  Receive Date: 20120906
  Receipt Date: 20120906
  Transmission Date: 20130627
  Serious: Yes (Other)
  Sender: FDA-Public Use
  Company Number: US-JNJFOC-20120900088

PATIENT
  Age: 26 Year
  Sex: Female

DRUGS (2)
  1. APAP [Suspect]
     Route: 065
  2. APAP [Suspect]
     Indication: PRODUCT USED FOR UNKNOWN INDICATION
     Route: 065

REACTIONS (4)
  - Hepatitis [Unknown]
  - Toxicity to various agents [Unknown]
  - Overdose [Unknown]
  - Liver injury [None]
